FAERS Safety Report 9913467 (Version 2)
Quarter: 2014Q1

REPORT INFORMATION
  Report Type: Spontaneous
  Country: US (occurrence: US)
  Receive Date: 20140220
  Receipt Date: 20140220
  Transmission Date: 20141002
  Serious: Yes (Hospitalization)
  Sender: FDA-Public Use
  Company Number: US-INCYTE CORPORATION-2013IN001002

PATIENT
  Age: 70 Year
  Sex: Male
  Weight: 65.76 kg

DRUGS (9)
  1. JAKAFI [Suspect]
     Indication: MYELOFIBROSIS
     Dosage: 20 MG, BID
     Route: 048
     Dates: start: 20130408
  2. ZANTAC [Concomitant]
     Dosage: 75 MG
     Route: 048
  3. SINGULAIR [Concomitant]
     Dosage: 4 MG GRANULES
     Route: 048
  4. PLAVIX [Concomitant]
     Dosage: 75 MG
     Route: 048
  5. VITAMIN D NOS [Concomitant]
     Dosage: 400 UT
     Route: 048
  6. VITAMIN B [Concomitant]
     Dosage: UNK
     Route: 048
  7. MULTIVITAMIN [Concomitant]
     Dosage: UNK
     Route: 048
  8. TYLENOL ARTHRITIS [Concomitant]
     Dosage: 650 MG
     Route: 048
  9. CO Q 10                            /00517201/ [Concomitant]
     Dosage: 30 MG
     Route: 048

REACTIONS (5)
  - Oesophageal varices haemorrhage [Unknown]
  - Blood iron decreased [Not Recovered/Not Resolved]
  - Blood pressure increased [Unknown]
  - Red blood cell count decreased [Not Recovered/Not Resolved]
  - Weight decreased [Unknown]
